FAERS Safety Report 7604719-0 (Version None)
Quarter: 2011Q3

REPORT INFORMATION
  Report Type: 
  Country: None (occurrence: None)
  Receive Date: 20110712
  Receipt Date: 20110706
  Transmission Date: 20111222
  Serious: Yes (Hospitalization)
  Sender: FDA-Public Use
  Company Number: US-GILEAD-2010-0034629

PATIENT
  Sex: Female

DRUGS (1)
  1. LETAIRIS [Suspect]
     Indication: PULMONARY ARTERIAL HYPERTENSION
     Route: 048
     Dates: start: 20100528

REACTIONS (8)
  - INFECTION [None]
  - HEART RATE DECREASED [None]
  - KIDNEY INFECTION [None]
  - CHROMATURIA [None]
  - LOSS OF CONSCIOUSNESS [None]
  - HAEMOGLOBIN INCREASED [None]
  - BACK PAIN [None]
  - FATIGUE [None]
